FAERS Safety Report 19427493 (Version 1)
Quarter: 2021Q2

REPORT INFORMATION
  Report Type: Report from Study
  Country: CO (occurrence: CO)
  Receive Date: 20210617
  Receipt Date: 20210617
  Transmission Date: 20210717
  Serious: Yes (Hospitalization, Other)
  Sender: FDA-Public Use
  Company Number: CO-ELI_LILLY_AND_COMPANY-CO202106006239

PATIENT
  Sex: Female

DRUGS (1)
  1. FORTEO [Suspect]
     Active Substance: TERIPARATIDE
     Indication: PRODUCT USED FOR UNKNOWN INDICATION
     Dosage: UNK UNK, UNKNOWN
     Route: 065
     Dates: start: 20190604, end: 202103

REACTIONS (9)
  - Renal pain [Not Recovered/Not Resolved]
  - Nephrolithiasis [Unknown]
  - Hydronephrosis [Unknown]
  - Memory impairment [Unknown]
  - Scoliosis [Recovered/Resolved]
  - Gait disturbance [Unknown]
  - COVID-19 [Recovered/Resolved]
  - Oxygen saturation decreased [Unknown]
  - Vomiting [Unknown]
